FAERS Safety Report 16991099 (Version 3)
Quarter: 2019Q4

REPORT INFORMATION
  Report Type: Spontaneous
  Country: JP (occurrence: JP)
  Receive Date: 20191104
  Receipt Date: 20191220
  Transmission Date: 20200122
  Serious: Yes (Death, Other)
  Sender: FDA-Public Use
  Company Number: JP-ELI_LILLY_AND_COMPANY-JP201907013108

PATIENT
  Age: 78 Year
  Sex: Male

DRUGS (2)
  1. ERBITUX [Suspect]
     Active Substance: CETUXIMAB
     Indication: HYPOPHARYNGEAL CANCER
     Dosage: 400 MG/M2, WEEKLY (1/W)
     Route: 041
     Dates: start: 20190620, end: 20190620
  2. ERBITUX [Suspect]
     Active Substance: CETUXIMAB
     Dosage: 250 MG/M2, WEEKLY (1/W)
     Route: 041
     Dates: start: 20190627

REACTIONS (7)
  - Disseminated intravascular coagulation [Unknown]
  - Platelet count decreased [Unknown]
  - Interstitial lung disease [Fatal]
  - Pneumomediastinum [Unknown]
  - Anaemia [Unknown]
  - Haematoma muscle [Unknown]
  - Sepsis [Unknown]

NARRATIVE: CASE EVENT DATE: 2019
